FAERS Safety Report 6533031-6 (Version None)
Quarter: 2010Q1

REPORT INFORMATION
  Report Type: 
  Country: None (occurrence: None)
  Receive Date: 20100111
  Receipt Date: 20100108
  Transmission Date: 20100710
  Serious: Yes (Death, Other)
  Sender: FDA-Public Use
  Company Number: FR-JNJFOC-20100102263

PATIENT
  Sex: Male

DRUGS (11)
  1. DURAGESIC-100 [Suspect]
     Indication: CANCER PAIN
     Route: 062
  2. ACTIQ [Suspect]
     Indication: CANCER PAIN
     Route: 048
  3. MORPHINE [Suspect]
     Indication: CANCER PAIN
     Route: 048
  4. ACTISKENAN [Suspect]
     Indication: CANCER PAIN
     Route: 050
  5. ACTISKENAN [Suspect]
     Route: 050
  6. ACTISKENAN [Suspect]
     Route: 050
  7. GRANOCYTE [Concomitant]
  8. ROVALCYTE [Concomitant]
  9. WELLVONE [Concomitant]
  10. ZELITREX [Concomitant]
  11. ANTIBIOTIC NOS [Concomitant]

REACTIONS (2)
  - DISEASE PROGRESSION [None]
  - DRUG INEFFECTIVE [None]
